FAERS Safety Report 5208940-0 (Version None)
Quarter: 2007Q1

REPORT INFORMATION
  Report Type: 
  Country: None (occurrence: None)
  Receive Date: 20070111
  Receipt Date: 20070111
  Transmission Date: 20070707
  Serious: Yes (Hospitalization)
  Sender: FDA-Public Use
  Company Number: None

PATIENT
  Age: 27 Year
  Sex: Male

DRUGS (1)
  1. PENICILLIN VK [Suspect]
     Indication: BACTERIAL INFECTION
     Dates: start: 20061101

REACTIONS (7)
  - ABDOMINAL TENDERNESS [None]
  - HEADACHE [None]
  - LEUKOPENIA [None]
  - LUMBAR PUNCTURE ABNORMAL [None]
  - MALAISE [None]
  - NEUTROPENIA [None]
  - PYREXIA [None]
